FAERS Safety Report 20389624 (Version 1)
Quarter: 2022Q1

REPORT INFORMATION
  Report Type: Spontaneous
  Country: JP (occurrence: None)
  Receive Date: 20220128
  Receipt Date: 20220128
  Transmission Date: 20220424
  Serious: Yes (Hospitalization, Other)
  Sender: FDA-Public Use
  Company Number: JP-ROCHE-3003428

PATIENT
  Age: 81 Year
  Sex: Female

DRUGS (2)
  1. RITUXAN [Suspect]
     Active Substance: RITUXIMAB
     Indication: Microscopic polyangiitis
     Route: 041
     Dates: start: 20211221, end: 20211221
  2. CYCLOPHOSPHAMIDE [Concomitant]
     Active Substance: CYCLOPHOSPHAMIDE
     Indication: Microscopic polyangiitis
     Route: 042

REACTIONS (4)
  - Infusion related reaction [Recovering/Resolving]
  - Pyrexia [Not Recovered/Not Resolved]
  - Shock symptom [Unknown]
  - Decreased activity [Unknown]

NARRATIVE: CASE EVENT DATE: 20211221
